FAERS Safety Report 14164869 (Version 4)
Quarter: 2018Q3

REPORT INFORMATION
  Report Type: Spontaneous
  Country: FR (occurrence: FR)
  Receive Date: 20171107
  Receipt Date: 20180823
  Transmission Date: 20181010
  Serious: Yes (Hospitalization)
  Sender: FDA-Public Use
  Company Number: PHHY2017FR161053

PATIENT
  Age: 81 Year
  Sex: Female

DRUGS (12)
  1. STALEVO [Suspect]
     Active Substance: CARBIDOPA\ENTACAPONE\LEVODOPA
     Dosage: 1 DF, QD (100/25/200 MG)
     Route: 048
  2. STALEVO [Suspect]
     Active Substance: CARBIDOPA\ENTACAPONE\LEVODOPA
     Indication: PARKINSON^S DISEASE
     Dosage: 1 DF (75 MG/ 18.75 MG / 200MG), 3X/DAY (3 TIMES DAILY (AT NOON, 4:00 PM AND IN THE EVENING)
     Route: 048
  3. STALEVO [Suspect]
     Active Substance: CARBIDOPA\ENTACAPONE\LEVODOPA
     Dosage: 1 DF, QD (STRENGTH: 100/25/200 MG)
     Route: 048
  4. LYRICA [Suspect]
     Active Substance: PREGABALIN
     Indication: NEURALGIA
     Dosage: 100 MG, QD (50 MG, 2X/DAY (50 MG IN THE MORNING AND 50 MG AT NOON)
     Route: 048
     Dates: end: 20171016
  5. CORDARONE X [Concomitant]
     Active Substance: AMIODARONE HYDROCHLORIDE
     Indication: ARRHYTHMIA
     Dosage: 200 MG, QD
     Route: 048
  6. CORDARONE [Concomitant]
     Active Substance: AMIODARONE HYDROCHLORIDE
     Indication: ARRHYTHMIA
     Dosage: 200 MG, QD (200 MG, 1X/DAY)
     Route: 048
  7. FUROSEMIDE. [Concomitant]
     Active Substance: FUROSEMIDE
     Indication: OEDEMA PERIPHERAL
     Dosage: 60 MG QD (40MG IN THE MORNING, 20 MG AT MIDDAY)
     Route: 048
  8. ARICEPT [Suspect]
     Active Substance: DONEPEZIL HYDROCHLORIDE
     Indication: COGNITIVE DISORDER
     Dosage: 5 MG, 1X/DAY (IN THE MORNING)
     Route: 048
     Dates: start: 20170925, end: 20170930
  9. FUROSEMIDE. [Concomitant]
     Active Substance: FUROSEMIDE
     Dosage: 40 MG, UNK
     Route: 065
  10. STALEVO [Suspect]
     Active Substance: CARBIDOPA\ENTACAPONE\LEVODOPA
     Dosage: 3 DF, UNK (STRENGTH: 75/18.75/200 MG)
     Route: 048
  11. ISOPTINE [Concomitant]
     Active Substance: VERAPAMIL HYDROCHLORIDE
     Indication: ARRHYTHMIA
     Dosage: 240 MG, QD (240 MG, 1X/DAY)
     Route: 048
  12. KALEORID LP [Concomitant]
     Active Substance: POTASSIUM CHLORIDE
     Indication: HYPOKALAEMIA
     Dosage: 1000 MG, QD (1000 MG, 1X/DAY)
     Route: 048

REACTIONS (4)
  - Disorientation [Recovered/Resolved]
  - Hallucination [Recovered/Resolved]
  - Confusional state [Recovering/Resolving]
  - Chills [Recovered/Resolved]

NARRATIVE: CASE EVENT DATE: 20170926
